FAERS Safety Report 25169798 (Version 2)
Quarter: 2025Q2

REPORT INFORMATION
  Report Type: Spontaneous
  Country: US (occurrence: US)
  Receive Date: 20250407
  Receipt Date: 20250417
  Transmission Date: 20250717
  Serious: Yes (Hospitalization)
  Sender: PARATEK PHARMACEUTICALS
  Company Number: US-PARATEK PHARMACEUTICALS, INC.-2025PTK00313

PATIENT
  Age: 74 Year
  Sex: Female
  Weight: 56.689 kg

DRUGS (3)
  1. NUZYRA [Suspect]
     Active Substance: OMADACYCLINE
     Indication: Mycobacterium abscessus infection
     Dosage: 300 MG, 2X/DAY
     Route: 048
     Dates: start: 20250307, end: 20250307
  2. NUZYRA [Suspect]
     Active Substance: OMADACYCLINE
     Dosage: 150 MG, 2X/DAY
     Route: 048
     Dates: start: 20250308, end: 202503
  3. NUZYRA [Suspect]
     Active Substance: OMADACYCLINE
     Dosage: 300 MG, 1X/DAY
     Route: 048
     Dates: start: 202503

REACTIONS (4)
  - Pneumonia [Unknown]
  - Vomiting [Recovered/Resolved]
  - Off label use [Not Recovered/Not Resolved]
  - Inappropriate schedule of product administration [Recovered/Resolved]

NARRATIVE: CASE EVENT DATE: 20250307
